FAERS Safety Report 24451639 (Version 1)
Quarter: 2024Q4

REPORT INFORMATION
  Report Type: Spontaneous
  Country: JP (occurrence: JP)
  Receive Date: 20241017
  Receipt Date: 20241017
  Transmission Date: 20250114
  Serious: Yes (Hospitalization)
  Sender: CITIUS PHARMACEUTICALS
  Company Number: JP-CITIUS PHARMACEUTICALS, INC.-2024CTS000024

PATIENT
  Sex: Female

DRUGS (1)
  1. DENILEUKIN DIFTITOX [Suspect]
     Active Substance: DENILEUKIN DIFTITOX
     Indication: Cutaneous T-cell lymphoma
     Dosage: 9?G/KG X 5 TIMES/3 WEEKS
     Route: 041
     Dates: start: 20240918

REACTIONS (6)
  - C-reactive protein increased [Unknown]
  - Blood albumin decreased [Not Recovered/Not Resolved]
  - Pyrexia [Not Recovered/Not Resolved]
  - Tachycardia [Not Recovered/Not Resolved]
  - Oedema [Unknown]
  - Pneumonia bacterial [Unknown]

NARRATIVE: CASE EVENT DATE: 20240101
